FAERS Safety Report 5364573-7 (Version None)
Quarter: 2007Q2

REPORT INFORMATION
  Report Type: 
  Country: None (occurrence: None)
  Receive Date: 20070530
  Receipt Date: 20070119
  Transmission Date: 20071010
  Serious: No
  Sender: FDA-Public Use
  Company Number: 2007PV028682

PATIENT
  Age: 49 Year
  Sex: Male
  Weight: 117.4816 kg

DRUGS (6)
  1. BYETTA [Suspect]
     Indication: DIABETES MELLITUS NON-INSULIN-DEPENDENT
     Dosage: 10 MCG; BID; SC, 10 MCG; BID; SC, 5 MCG; BID; SC
     Route: 058
     Dates: start: 20060101, end: 20060201
  2. BYETTA [Suspect]
     Indication: DIABETES MELLITUS NON-INSULIN-DEPENDENT
     Dosage: 10 MCG; BID; SC, 10 MCG; BID; SC, 5 MCG; BID; SC
     Route: 058
     Dates: start: 20060201, end: 20061213
  3. BYETTA [Suspect]
     Indication: DIABETES MELLITUS NON-INSULIN-DEPENDENT
     Dosage: 10 MCG; BID; SC, 10 MCG; BID; SC, 5 MCG; BID; SC
     Route: 058
     Dates: start: 20070119
  4. ACTOS [Concomitant]
  5. GLUCOPHAGE [Concomitant]
  6. AMARYL [Concomitant]

REACTIONS (1)
  - WEIGHT INCREASED [None]
